FAERS Safety Report 7410189-8 (Version None)
Quarter: 2011Q2

REPORT INFORMATION
  Report Type: 
  Country: None (occurrence: None)
  Receive Date: 20110412
  Receipt Date: 20110331
  Transmission Date: 20111010
  Serious: Yes (Other)
  Sender: FDA-Public Use
  Company Number: US-JNJFOC-20110400801

PATIENT
  Sex: Female
  Weight: 71.67 kg

DRUGS (5)
  1. REMICADE [Suspect]
     Indication: CROHN'S DISEASE
     Route: 042
  2. CALCIUM [Concomitant]
     Indication: BLOOD CALCIUM DECREASED
     Dosage: 2 TABLETS DAILY
     Route: 048
  3. CLARITIN [Concomitant]
     Indication: MULTIPLE ALLERGIES
     Route: 048
  4. LIALDA [Concomitant]
     Indication: COLITIS ULCERATIVE
     Dosage: 2 TABLETS IN AM AND PM
     Route: 048
  5. REMICADE [Suspect]
     Indication: COLITIS ULCERATIVE
     Route: 042

REACTIONS (8)
  - BURSITIS [None]
  - CROHN'S DISEASE [None]
  - PARAESTHESIA [None]
  - MALABSORPTION [None]
  - MUSCULOSKELETAL STIFFNESS [None]
  - OEDEMA PERIPHERAL [None]
  - MOVEMENT DISORDER [None]
  - FIBROMYALGIA [None]
